FAERS Safety Report 4503418-1 (Version None)
Quarter: 2004Q4

REPORT INFORMATION
  Report Type: 
  Country: None (occurrence: None)
  Receive Date: 20041112
  Receipt Date: 20041102
  Transmission Date: 20050328
  Serious: Yes (Other)
  Sender: FDA-Public Use
  Company Number: 2004242732CH

PATIENT
  Age: 33 Year
  Sex: Female
  Weight: 63 kg

DRUGS (2)
  1. DETRUSITOL SR (TOLERODINE)CAPSULE , PROLONGED RELEASE [Suspect]
     Indication: URINARY INCONTINENCE
     Dosage: 4 MG, QD, ORAL
     Route: 048
     Dates: start: 20040701, end: 20040913
  2. URISPAS [Suspect]
     Indication: URINARY INCONTINENCE
     Dosage: QD, ORAL
     Route: 048
     Dates: start: 20040401, end: 20040913

REACTIONS (5)
  - ASTHENIA [None]
  - CHROMATURIA [None]
  - HEPATOMEGALY [None]
  - JAUNDICE [None]
  - LIVER FUNCTION TEST ABNORMAL [None]
